FAERS Safety Report 8898959 (Version 1)
Quarter: 2012Q4

REPORT INFORMATION
  Report Type: 
  Country: US (occurrence: US)
  Receive Date: 20121109
  Receipt Date: 20121109
  Transmission Date: 20130627
  Serious: Yes (Hospitalization)
  Sender: FDA-Public Use
  Company Number: US-BAYER-2012-116915

PATIENT
  Age: 27 Year
  Sex: Female
  Weight: 83 kg

DRUGS (11)
  1. YASMIN [Suspect]
     Indication: ACNE
  2. YAZ [Suspect]
  3. RETIN-A MICRO [Concomitant]
     Indication: ACNE
     Dosage: UNK
  4. WELLBID-D [Concomitant]
     Dosage: 600 mg-40 mg
  5. ASTELIN [Concomitant]
     Dosage: 137 ?g, UNK
     Route: 045
  6. FLUCONAZOLE [Concomitant]
     Dosage: 150 mg, UNK
  7. NEOMYCIN SULFATE/POLYMYXIN B SULFATE [Concomitant]
  8. CLARITHROMYCIN [Concomitant]
     Dosage: 500 mg, UNK
  9. ACETAMINOPHEN W/CODEINE [Concomitant]
  10. ALLEGRA [Concomitant]
     Dosage: PRN
  11. CLARITIN [Concomitant]
     Dosage: PRN

REACTIONS (1)
  - Pulmonary embolism [None]
